FAERS Safety Report 7642037-5 (Version None)
Quarter: 2011Q3

REPORT INFORMATION
  Report Type: 
  Country: None (occurrence: None)
  Receive Date: 20110728
  Receipt Date: 20110720
  Transmission Date: 20111222
  Serious: Yes (Hospitalization, Other)
  Sender: FDA-Public Use
  Company Number: US-MERCK-1106USA00883

PATIENT
  Age: 68 Year
  Sex: Female
  Weight: 62 kg

DRUGS (6)
  1. FOSAMAX PLUS D [Suspect]
     Indication: OSTEOPOROSIS
     Route: 048
     Dates: start: 20050620, end: 20090330
  2. CENTRUM [Concomitant]
     Route: 048
     Dates: start: 19860101
  3. FOSAMAX [Suspect]
     Indication: OSTEOPOROSIS
     Route: 048
     Dates: start: 19990301, end: 20010324
  4. FOSAMAX [Suspect]
     Route: 048
     Dates: start: 20010324, end: 20050620
  5. VITA C [Concomitant]
     Route: 048
     Dates: start: 19860101
  6. OS-CAL [Concomitant]
     Route: 048
     Dates: start: 19990101

REACTIONS (3)
  - HYPERCHOLESTEROLAEMIA [None]
  - FEMUR FRACTURE [None]
  - STRESS FRACTURE [None]
